FAERS Safety Report 9501396 (Version 1)
Quarter: 2013Q1

REPORT INFORMATION
  Report Type: Spontaneous
  Country: US (occurrence: None)
  Receive Date: 20130225
  Receipt Date: 20130225
  Transmission Date: 20140127
  Serious: Yes (Hospitalization)
  Sender: FDA-Public Use
  Company Number: 2012-306

PATIENT
  Age: 47 Year
  Sex: Male

DRUGS (3)
  1. PRIALT [Suspect]
     Indication: PHANTOM PAIN
     Route: 037
     Dates: start: 20120514, end: 20120514
  2. NAROPEINE [Suspect]
     Indication: PHANTOM PAIN
     Dosage: UKNOWN MG ONCE/HOUR INTRATHECAL
     Route: 037
  3. MORPHINE SULFATE [Suspect]
     Indication: PHANTOM PAIN

REACTIONS (5)
  - Delirium [None]
  - Paranoia [None]
  - Agitation [None]
  - Hallucination [None]
  - Hostility [None]
